FAERS Safety Report 8069789-7 (Version None)
Quarter: 2012Q1

REPORT INFORMATION
  Report Type: 
  Country: None (occurrence: None)
  Receive Date: 20120125
  Receipt Date: 20120118
  Transmission Date: 20120608
  Serious: Yes (Other)
  Sender: FDA-Public Use
  Company Number: DE-PFIZER INC-2012014906

PATIENT
  Sex: Male

DRUGS (1)
  1. VENLAFAXINE HYDROCHLORIDE [Suspect]
     Indication: DEPRESSION
     Dosage: 225 MG
     Route: 064

REACTIONS (5)
  - RESPIRATORY ACIDOSIS [None]
  - RESPIRATORY DISORDER NEONATAL [None]
  - HYPOTENSION [None]
  - MYOCLONIC EPILEPSY [None]
  - MATERNAL EXPOSURE TIMING UNSPECIFIED [None]
